FAERS Safety Report 15933251 (Version 1)
Quarter: 2019Q1

REPORT INFORMATION
  Report Type: Spontaneous
  Country: FR (occurrence: FR)
  Receive Date: 20190207
  Receipt Date: 20190207
  Transmission Date: 20190417
  Serious: Yes (Hospitalization)
  Sender: FDA-Public Use
  Company Number: FR-PFIZER INC-2006146204

PATIENT
  Age: 15 Year
  Sex: Male
  Weight: 58 kg

DRUGS (22)
  1. DAUNORUBICIN [Suspect]
     Active Substance: DAUNORUBICIN
     Dosage: UNK
     Dates: start: 20060618, end: 20060701
  2. FORTUM [CEFTAZIDIME] [Concomitant]
     Active Substance: CEFTAZIDIME
     Dosage: UNK
  3. PHLOROGLUCINOL [Concomitant]
     Active Substance: PHLOROGLUCINOL
     Dosage: UNK
  4. TIEMONIUM [Concomitant]
     Active Substance: TIEMONIUM
     Dosage: UNK
  5. VANCOMYCIN HYDROCHLORIDE. [Concomitant]
     Active Substance: VANCOMYCIN HYDROCHLORIDE
     Dosage: UNK
  6. AZANTAC [Concomitant]
     Active Substance: RANITIDINE HYDROCHLORIDE
     Dosage: UNK
  7. AMBISOME [Suspect]
     Active Substance: AMPHOTERICIN B
     Dosage: UNK
     Dates: end: 20060818
  8. TIENAM [Concomitant]
     Active Substance: CILASTATIN SODIUM\IMIPENEM
     Dosage: UNK
  9. ZOPHREN [ONDANSETRON] [Concomitant]
     Active Substance: ONDANSETRON
     Dosage: UNK
  10. LOXEN [NICARDIPINE HYDROCHLORIDE] [Concomitant]
     Active Substance: NICARDIPINE HYDROCHLORIDE
     Dosage: UNK
  11. VITAMIN B6 [Concomitant]
     Active Substance: PYRIDOXINE HYDROCHLORIDE
     Dosage: UNK
  12. MORPHINE SULFATE. [Concomitant]
     Active Substance: MORPHINE SULFATE
     Dosage: UNK
  13. FLAGYL [Suspect]
     Active Substance: METRONIDAZOLE\METRONIDAZOLE HYDROCHLORIDE
     Dosage: UNK
     Dates: start: 20060710, end: 20060902
  14. INEXIUM [ESOMEPRAZOLE MAGNESIUM] [Concomitant]
     Active Substance: ESOMEPRAZOLE MAGNESIUM
     Dosage: UNK
  15. NUBAIN [Concomitant]
     Active Substance: NALBUPHINE HYDROCHLORIDE
     Dosage: UNK
  16. BACTRIM [Concomitant]
     Active Substance: SULFAMETHOXAZOLE\TRIMETHOPRIM
     Dosage: UNK
  17. ARACYTINE [Suspect]
     Active Substance: CYTARABINE
     Dosage: UNK
     Dates: end: 20060830
  18. CIFLOX [CIPROFLOXACIN] [Concomitant]
     Active Substance: CIPROFLOXACIN
     Dosage: UNK
  19. VITAMIN B1 [Concomitant]
     Active Substance: THIAMINE HYDROCHLORIDE
     Dosage: UNK
  20. VINCRISTINE SULFATE. [Suspect]
     Active Substance: VINCRISTINE SULFATE
     Dosage: UNK
     Dates: start: 20060618, end: 20060701
  21. ASPARAGINASE [Suspect]
     Active Substance: ASPARAGINASE
     Dosage: UNK
     Route: 042
     Dates: start: 20060623, end: 20060629
  22. AMIKLIN [AMIKACIN] [Concomitant]
     Dosage: UNK

REACTIONS (1)
  - Peripheral sensorimotor neuropathy [Recovering/Resolving]

NARRATIVE: CASE EVENT DATE: 20060715
